FAERS Safety Report 16680328 (Version 12)
Quarter: 2020Q3

REPORT INFORMATION
  Report Type: Report from Study
  Country: US (occurrence: US)
  Receive Date: 20190807
  Receipt Date: 20200709
  Transmission Date: 20201102
  Serious: Yes (Life-Threatening, Hospitalization)
  Sender: FDA-Public Use
  Company Number: US-ACTELION-A-US2019-190332

PATIENT
  Age: 41 Year
  Sex: Female

DRUGS (7)
  1. VELETRI [Suspect]
     Active Substance: EPOPROSTENOL
     Dosage: 6 NG/KG, PER MIN
     Route: 042
     Dates: start: 20190419
  2. VELETRI [Suspect]
     Active Substance: EPOPROSTENOL
     Dosage: 20 NG/KG, PER MIN
     Route: 042
     Dates: start: 20190419
  3. OPSUMIT [Suspect]
     Active Substance: MACITENTAN
     Indication: PULMONARY ARTERIAL HYPERTENSION
     Dosage: 10 MG, QD
     Route: 048
     Dates: start: 20180607
  4. ORENITRAM [Suspect]
     Active Substance: TREPROSTINIL
     Indication: PRODUCT USED FOR UNKNOWN INDICATION
     Dosage: 2.5 MG, TID
     Route: 065
  5. SILDENAFIL. [Concomitant]
     Active Substance: SILDENAFIL
     Dosage: 20 MG, TID
     Dates: start: 201906
  6. VELETRI [Suspect]
     Active Substance: EPOPROSTENOL
     Dosage: UNK
     Route: 042
     Dates: start: 20171209
  7. VELETRI [Suspect]
     Active Substance: EPOPROSTENOL
     Indication: PULMONARY ARTERIAL HYPERTENSION
     Dosage: 12 NG/KG, PER MIN
     Route: 042
     Dates: start: 20190419

REACTIONS (20)
  - Sepsis [Not Recovered/Not Resolved]
  - Diarrhoea [Unknown]
  - Product dose omission issue [Unknown]
  - Acute respiratory failure [Recovering/Resolving]
  - Respiratory tract congestion [Recovering/Resolving]
  - Pain in jaw [Unknown]
  - Respiratory therapy [Recovering/Resolving]
  - Shock [Not Recovered/Not Resolved]
  - Ankle fracture [Unknown]
  - Cough [Recovering/Resolving]
  - Device malfunction [Unknown]
  - Skin irritation [Unknown]
  - Catheter site irritation [Unknown]
  - Device leakage [Unknown]
  - Oropharyngeal pain [Recovering/Resolving]
  - Fall [Unknown]
  - Nausea [Unknown]
  - Vomiting [Recovering/Resolving]
  - Catheter management [Unknown]
  - Chest pain [Unknown]

NARRATIVE: CASE EVENT DATE: 201909
